FAERS Safety Report 9460548 (Version 1)
Quarter: 2013Q3

REPORT INFORMATION
  Report Type: Spontaneous
  Country: US (occurrence: US)
  Receive Date: 20130815
  Receipt Date: 20130815
  Transmission Date: 20140515
  Serious: No
  Sender: FDA-Public Use
  Company Number: US-009507513-1308USA006297

PATIENT
  Sex: Female

DRUGS (1)
  1. MIRALAX [Suspect]
     Indication: CONSTIPATION
     Dosage: UNK, QID
     Route: 048

REACTIONS (3)
  - Eye swelling [Unknown]
  - Skin discolouration [Not Recovered/Not Resolved]
  - Inappropriate schedule of drug administration [Unknown]
